FAERS Safety Report 5670778-8 (Version None)
Quarter: 2008Q1

REPORT INFORMATION
  Report Type: 
  Country: None (occurrence: None)
  Receive Date: 20080318
  Receipt Date: 20080312
  Transmission Date: 20080703
  Serious: Yes (Other)
  Sender: FDA-Public Use
  Company Number: US-ROCHE-552836

PATIENT
  Age: 2 Year
  Sex: Female

DRUGS (2)
  1. NAPROXEN [Suspect]
     Route: 065
  2. METHOTREXATE [Suspect]
     Route: 065

REACTIONS (4)
  - HEPATITIS [None]
  - HEPATOTOXICITY [None]
  - HYPERAMMONAEMIA [None]
  - HYPOGLYCAEMIA [None]
